FAERS Safety Report 26112558 (Version 2)
Quarter: 2025Q4

REPORT INFORMATION
  Report Type: Spontaneous
  Country: EU (occurrence: EU)
  Receive Date: 20251202
  Receipt Date: 20251217
  Transmission Date: 20260118
  Serious: Yes (Death, Hospitalization, Other)
  Sender: NOVO NORDISK
  Company Number: EU-NOVOPROD-1570885

PATIENT
  Age: 46 Year
  Sex: Female

DRUGS (1)
  1. OZEMPIC [Suspect]
     Active Substance: SEMAGLUTIDE
     Indication: Product used for unknown indication
     Dosage: 2.5 MG

REACTIONS (4)
  - Death [Fatal]
  - Pulmonary embolism [Unknown]
  - Suspected counterfeit product [Unknown]
  - Product use issue [Unknown]

NARRATIVE: CASE EVENT DATE: 20251117
